FAERS Safety Report 25842790 (Version 1)
Quarter: 2025Q3

REPORT INFORMATION
  Report Type: Spontaneous
  Country: BR (occurrence: BR)
  Receive Date: 20250924
  Receipt Date: 20250924
  Transmission Date: 20251020
  Serious: Yes (Death, Hospitalization, Other)
  Sender: SCIEGEN PHARMACEUTICALS INC
  Company Number: BR-SCIEGENP-2025SCLIT00279

PATIENT
  Age: 49 Year
  Sex: Female

DRUGS (1)
  1. DIVALPROEX SODIUM [Suspect]
     Active Substance: DIVALPROEX SODIUM
     Indication: Product used for unknown indication
     Route: 065

REACTIONS (9)
  - Coma [Fatal]
  - Suicide attempt [Fatal]
  - Acute kidney injury [Fatal]
  - Hyperthermia [Fatal]
  - Metabolic acidosis [Fatal]
  - Hypotension [Fatal]
  - Toxicity to various agents [Fatal]
  - Hepatic failure [Fatal]
  - Intentional overdose [Fatal]
